FAERS Safety Report 12428402 (Version 1)
Quarter: 2016Q2

REPORT INFORMATION
  Report Type: Spontaneous
  Country: JP (occurrence: JP)
  Receive Date: 20160602
  Receipt Date: 20160602
  Transmission Date: 20160815
  Serious: Yes (Death)
  Sender: FDA-Public Use
  Company Number: PHJP1997JP002574

PATIENT
  Age: 63 Year
  Sex: Male

DRUGS (4)
  1. ALEVIATIN//PHENYTOIN [Concomitant]
     Indication: PRODUCT USED FOR UNKNOWN INDICATION
     Route: 065
  2. CERCINE [Concomitant]
     Active Substance: DIAZEPAM
     Indication: PRODUCT USED FOR UNKNOWN INDICATION
     Route: 065
  3. DEPAKENE//VALPROATE SODIUM [Concomitant]
     Indication: PRODUCT USED FOR UNKNOWN INDICATION
     Route: 065
  4. TEGRETOL [Suspect]
     Active Substance: CARBAMAZEPINE
     Indication: EPILEPSY
     Route: 048
     Dates: end: 199706

REACTIONS (7)
  - Clostridium test positive [None]
  - Neuroleptic malignant syndrome [Recovered/Resolved]
  - Pleural effusion [None]
  - Wound [None]
  - Renal impairment [None]
  - Death [Fatal]
  - Ascites [None]
